FAERS Safety Report 12412326 (Version 1)
Quarter: 2016Q2

REPORT INFORMATION
  Report Type: Spontaneous
  Country: JP (occurrence: JP)
  Receive Date: 20160527
  Receipt Date: 20160527
  Transmission Date: 20160815
  Serious: Yes (Other)
  Sender: FDA-Public Use
  Company Number: JP-BAUSCH-BL-2016-012413

PATIENT
  Sex: Male

DRUGS (2)
  1. NITRO [Concomitant]
     Active Substance: NITROGLYCERIN
     Indication: PRODUCT USED FOR UNKNOWN INDICATION
  2. HERBESSER [Suspect]
     Active Substance: DILTIAZEM HYDROCHLORIDE
     Indication: PRINZMETAL ANGINA
     Route: 048
     Dates: start: 2013

REACTIONS (8)
  - Atrioventricular block [Unknown]
  - Pain in extremity [Unknown]
  - Bradycardia [Unknown]
  - Pruritus [Unknown]
  - Flushing [Unknown]
  - Varicose vein [Unknown]
  - Erythema [Unknown]
  - Hyperhidrosis [Unknown]

NARRATIVE: CASE EVENT DATE: 2001
